FAERS Safety Report 7587060-4 (Version None)
Quarter: 2011Q3

REPORT INFORMATION
  Report Type: 
  Country: None (occurrence: None)
  Receive Date: 20110701
  Receipt Date: 20110621
  Transmission Date: 20111222
  Serious: Yes (Hospitalization)
  Sender: FDA-Public Use
  Company Number: PHHY2011US30949

PATIENT
  Sex: Male

DRUGS (1)
  1. EXJADE [Suspect]
     Indication: SICKLE CELL ANAEMIA
     Dosage: 1500 MG, QD
     Route: 048
     Dates: start: 20110409

REACTIONS (5)
  - DIARRHOEA [None]
  - SICKLE CELL ANAEMIA WITH CRISIS [None]
  - ABDOMINAL DISCOMFORT [None]
  - VISION BLURRED [None]
  - INSOMNIA [None]
